FAERS Safety Report 6810893-6 (Version None)
Quarter: 2010Q2

REPORT INFORMATION
  Report Type: 
  Country: None (occurrence: None)
  Receive Date: 20100630
  Receipt Date: 20080903
  Transmission Date: 20101027
  Serious: No
  Sender: FDA-Public Use
  Company Number: US-PFIZER INC-2008068996

PATIENT
  Sex: Female
  Weight: 132.45 kg

DRUGS (19)
  1. NICOTROL [Suspect]
     Indication: SMOKING CESSATION THERAPY
     Dates: start: 20080501
  2. HYOSCYAMINE [Concomitant]
  3. PREVACID [Concomitant]
  4. LESCOL [Concomitant]
  5. SYNTHROID [Concomitant]
  6. KLONOPIN [Concomitant]
  7. CARDIZEM [Concomitant]
  8. LISINOPRIL [Concomitant]
  9. HYDROCHLOROTHIAZIDE [Concomitant]
  10. CELEBREX [Concomitant]
  11. METHOCARBAMOL [Concomitant]
  12. NIACIN [Concomitant]
  13. GLUCOSAMINE [Concomitant]
  14. LEXAPRO [Concomitant]
  15. WELLBUTRIN [Concomitant]
  16. BUSPIRONE HCL [Concomitant]
  17. CLONAZEPAM [Concomitant]
  18. NEURONTIN [Concomitant]
  19. REQUIP [Concomitant]

REACTIONS (2)
  - MEDICATION ERROR [None]
  - SALIVA ALTERED [None]
